FAERS Safety Report 20048563 (Version 4)
Quarter: 2021Q4

REPORT INFORMATION
  Report Type: Spontaneous
  Country: None (occurrence: BR)
  Receive Date: 20211109
  Receipt Date: 20211223
  Transmission Date: 20220303
  Serious: Yes (Death, Hospitalization)
  Sender: FDA-Public Use
  Company Number: BR-AKCEA THERAPEUTICS, INC.-2021IS001843

PATIENT
  Age: 83 Year
  Sex: Male

DRUGS (3)
  1. TEGSEDI [Suspect]
     Active Substance: INOTERSEN SODIUM
     Indication: Amyloidosis
     Dates: start: 20211027
  2. TEGSEDI [Suspect]
     Active Substance: INOTERSEN SODIUM
     Indication: Polyneuropathy
  3. DEVICE [Suspect]
     Active Substance: DEVICE

REACTIONS (16)
  - Dyspnoea [Unknown]
  - Vomiting [Unknown]
  - Diarrhoea [Unknown]
  - Tremor [Unknown]
  - Myalgia [Unknown]
  - Nausea [Unknown]
  - Hypertension [Unknown]
  - Platelet count decreased [Recovering/Resolving]
  - Dehydration [Unknown]
  - Agitation [Unknown]
  - Hypoxia [Unknown]
  - Delirium [Unknown]
  - Hallucination, visual [Unknown]
  - Renal disorder [Unknown]
  - Autonomic nervous system imbalance [Unknown]
  - Death [Fatal]

NARRATIVE: CASE EVENT DATE: 20211027
